FAERS Safety Report 4716600-5 (Version None)
Quarter: 2005Q3

REPORT INFORMATION
  Report Type: 
  Country: None (occurrence: None)
  Receive Date: 20050713
  Receipt Date: 20050628
  Transmission Date: 20060218
  Serious: Yes (Death, Other)
  Sender: FDA-Public Use
  Company Number: MAG-2005-0000378

PATIENT
  Age: 70 Year
  Sex: Male

DRUGS (25)
  1. OXYCODONE HCL [Suspect]
     Indication: CANCER PAIN
     Dosage: 10 MG, DAILY, ORAL
     Route: 048
     Dates: start: 20041201, end: 20050327
  2. LOXONIN (LOXOPROFEN SODIUM) [Concomitant]
  3. CALSLOT (MANIDIPINE HYDROCHLORIDE) [Concomitant]
  4. FAMOTIDINE [Concomitant]
  5. GASLON (IRSOGLADINE MALEATE) [Concomitant]
  6. MAGNESIUM OXIDE (MAGNESIUM OXIDE) [Concomitant]
  7. ARGAMATE [Concomitant]
  8. DECADRON [Concomitant]
  9. MUCOSTA (REBAMIPIDE) [Concomitant]
  10. NAUZELIN (DOMPERIDONE) [Concomitant]
  11. PURSENNID (SENNA LEAF) [Concomitant]
  12. ALOSENN (ACHILLEA, RUBIA ROOT TINCTURE, SENNA LEAF, SENNA FRUT, TARAXA [Concomitant]
  13. LEUPLIN (LEUPRORELIN ACETATE) [Concomitant]
  14. LASIX [Concomitant]
  15. LAXOBERON (SODIUM PICOSULFATE) [Concomitant]
  16. LECICARBON (SODIUM PHOSPHATE MONOBASIC, SODIUM BICARBONATE) [Concomitant]
  17. SOLITA T (ELECTROLYTES NOS) [Concomitant]
  18. SULPERAZON (SULBACTAM SODIUM, CEFOPERAZONE SODIUM) [Concomitant]
  19. ATARAX [Concomitant]
  20. KETOPROFEN [Concomitant]
  21. BORRAZA-G (LIDOCAINE, TRIBENOSIDE) OINTMENT [Concomitant]
  22. FENTANYL [Concomitant]
  23. VOLTAREN [Concomitant]
  24. HYOSCINE HBR HYT [Concomitant]
  25. SOSEGON (PENTAZOCINE) [Concomitant]

REACTIONS (5)
  - CONDITION AGGRAVATED [None]
  - HEPATIC FAILURE [None]
  - MALIGNANT NEOPLASM PROGRESSION [None]
  - NAUSEA [None]
  - PROSTATE CANCER [None]
